FAERS Safety Report 25365895 (Version 1)
Quarter: 2025Q2

REPORT INFORMATION
  Report Type: Spontaneous
  Country: FR (occurrence: FR)
  Receive Date: 20250528
  Receipt Date: 20250528
  Transmission Date: 20250716
  Serious: Yes (Death, Hospitalization, Other)
  Sender: AMGEN
  Company Number: FR-AMGEN-FRASP2025100256

PATIENT

DRUGS (2)
  1. ECULIZUMAB [Suspect]
     Active Substance: ECULIZUMAB
     Indication: Paroxysmal nocturnal haemoglobinuria
     Route: 065
  2. PEGCETACOPLAN [Concomitant]
     Active Substance: PEGCETACOPLAN
     Route: 065

REACTIONS (10)
  - Acute myeloid leukaemia [Fatal]
  - Adenocarcinoma [Fatal]
  - Idiopathic interstitial pneumonia [Unknown]
  - Aplastic anaemia [Unknown]
  - Thrombosis [Unknown]
  - Budd-Chiari syndrome [Unknown]
  - Cardiac failure [Unknown]
  - Infection [Unknown]
  - Haemolysis [Unknown]
  - Pyrexia [Unknown]
